FAERS Safety Report 24324377 (Version 3)
Quarter: 2025Q2

REPORT INFORMATION
  Report Type: Spontaneous
  Country: US (occurrence: US)
  Receive Date: 20240916
  Receipt Date: 20250405
  Transmission Date: 20250716
  Serious: Yes (Hospitalization)
  Sender: SANOFI AVENTIS
  Company Number: US-SA-2024SA263159

PATIENT
  Age: 70 Year
  Sex: Female

DRUGS (17)
  1. DUPIXENT [Suspect]
     Active Substance: DUPILUMAB
     Indication: Dermatitis atopic
     Dosage: 300 MG, QOW
     Route: 058
     Dates: start: 20240426
  2. DUPIXENT [Suspect]
     Active Substance: DUPILUMAB
     Dosage: 300 MG, Q4W
     Route: 058
  3. LOSARTAN POTASSIUM [Suspect]
     Active Substance: LOSARTAN POTASSIUM
     Dates: end: 2024
  4. BETAMETHASONE DIPROPIONATE [Concomitant]
     Active Substance: BETAMETHASONE DIPROPIONATE
  5. COENZYME Q10 [Concomitant]
     Active Substance: DIETARY SUPPLEMENT\UBIDECARENONE
  6. FLONASE [Concomitant]
     Active Substance: FLUTICASONE PROPIONATE
  7. HYDROCHLOROTHIAZIDE [Concomitant]
     Active Substance: HYDROCHLOROTHIAZIDE
  8. SINGULAIR [Concomitant]
     Active Substance: MONTELUKAST SODIUM
  9. ZYRTEC [Concomitant]
     Active Substance: CETIRIZINE HYDROCHLORIDE
  10. IRON [Concomitant]
     Active Substance: IRON
  11. UREA [Concomitant]
     Active Substance: UREA
  12. BETAMETHASONE [Concomitant]
     Active Substance: BETAMETHASONE
  13. IRON [Concomitant]
     Active Substance: IRON
  14. PROBIOTICS NOS [Concomitant]
     Active Substance: PROBIOTICS NOS
  15. DRY EYES [Concomitant]
     Active Substance: MINERAL OIL\PETROLATUM
  16. HYDROCHLOROTHIAZIDE [Concomitant]
     Active Substance: HYDROCHLOROTHIAZIDE
  17. FLONASE ALLERGY RELIEF [Concomitant]
     Active Substance: FLUTICASONE PROPIONATE

REACTIONS (12)
  - Headache [Unknown]
  - Dizziness [Unknown]
  - Dehydration [Unknown]
  - Blood potassium decreased [Unknown]
  - Dry skin [Unknown]
  - Sleep disorder [Not Recovered/Not Resolved]
  - Feeling abnormal [Not Recovered/Not Resolved]
  - Skin exfoliation [Unknown]
  - Pruritus [Unknown]
  - Dry eye [Unknown]
  - Therapeutic response shortened [Unknown]
  - Inappropriate schedule of product administration [Unknown]

NARRATIVE: CASE EVENT DATE: 20240101
